FAERS Safety Report 8933383 (Version 3)
Quarter: 2013Q1

REPORT INFORMATION
  Report Type: Spontaneous
  Country: US (occurrence: US)
  Receive Date: 20121128
  Receipt Date: 20130315
  Transmission Date: 20140127
  Serious: Yes (Disabling, Other)
  Sender: FDA-Public Use
  Company Number: US-BAXTER-2011BH034615

PATIENT
  Age: 57 Year
  Sex: Male
  Weight: 79.45 kg

DRUGS (9)
  1. ADVATE [Suspect]
     Indication: HAEMOPHILIA
     Route: 042
     Dates: end: 20110828
  2. ADVATE [Suspect]
     Route: 042
     Dates: start: 20110507, end: 20110514
  3. ADVATE [Suspect]
     Route: 042
     Dates: start: 20110607, end: 20110612
  4. ADVATE [Suspect]
     Route: 042
     Dates: start: 201108, end: 201108
  5. ADVATE [Suspect]
     Route: 042
     Dates: start: 20110818, end: 20110818
  6. ADVATE [Suspect]
     Route: 042
     Dates: start: 20110819, end: 20110819
  7. ADVATE [Suspect]
     Route: 042
     Dates: start: 20110821, end: 20110821
  8. BENAZEPRIL HCL [Concomitant]
     Indication: HYPERTENSION
     Dosage: 20-25 MG
     Route: 048
  9. ATENOLOL [Concomitant]
     Indication: HYPERTENSION
     Route: 048

REACTIONS (2)
  - Drug ineffective [Unknown]
  - Haemorrhage [Recovered/Resolved]
